FAERS Safety Report 16310001 (Version 2)
Quarter: 2019Q2

REPORT INFORMATION
  Report Type: Spontaneous
  Country: US (occurrence: US)
  Receive Date: 20190514
  Receipt Date: 20190603
  Transmission Date: 20190711
  Serious: Yes (Other)
  Sender: FDA-Public Use
  Company Number: US-AKORN PHARMACEUTICALS-2019AKN01004

PATIENT
  Age: 20 Year
  Sex: Male
  Weight: 81 kg

DRUGS (4)
  1. TOPAMAX [Concomitant]
     Active Substance: TOPIRAMATE
  2. AMITRIPTYLINE [Concomitant]
     Active Substance: AMITRIPTYLINE
  3. MYORISAN [Suspect]
     Active Substance: ISOTRETINOIN
     Indication: ACNE
     Dosage: 30 MG, 1X/DAY
     Dates: start: 20190312, end: 201903
  4. ZYRTEC [Concomitant]
     Active Substance: CETIRIZINE HYDROCHLORIDE

REACTIONS (4)
  - Anxiety [Unknown]
  - Visual impairment [Recovering/Resolving]
  - Off label use [Recovered/Resolved]
  - Irritability [Unknown]

NARRATIVE: CASE EVENT DATE: 2019
